FAERS Safety Report 8908782 (Version 2)
Quarter: 2012Q4

REPORT INFORMATION
  Report Type: 
  Country: JP (occurrence: JP)
  Receive Date: 20121114
  Receipt Date: 20121211
  Transmission Date: 20130627
  Serious: Yes (Death, Other)
  Sender: FDA-Public Use
  Company Number: PHHY2012JP104818

PATIENT
  Age: 87 Year
  Sex: Male

DRUGS (3)
  1. RIVASTIGMIN [Suspect]
     Indication: DEMENTIA ALZHEIMER^S TYPE
     Dosage: 4.5 mg, QD
     Route: 062
     Dates: start: 20120608, end: 20120703
  2. RIVASTIGMIN [Suspect]
     Dosage: 9 mg, QD
     Route: 062
     Dates: start: 20120704, end: 20120807
  3. RIVASTIGMIN [Suspect]
     Dosage: 13.5 mg, QD
     Route: 062
     Dates: start: 20120808

REACTIONS (4)
  - Pneumonia aspiration [Fatal]
  - Decreased appetite [Fatal]
  - Dyspnoea [Fatal]
  - Dysphagia [None]
